FAERS Safety Report 7262522-8 (Version None)
Quarter: 2011Q1

REPORT INFORMATION
  Report Type: 
  Country: None (occurrence: None)
  Receive Date: 20110130
  Receipt Date: 20101210
  Transmission Date: 20110831
  Serious: No
  Sender: FDA-Public Use
  Company Number: US-ABBOTT-10P-163-0690690-00

PATIENT
  Age: 63 Year
  Sex: Male

DRUGS (9)
  1. GLIMEPIRIDE [Concomitant]
     Indication: DIABETES MELLITUS
  2. OMEPRAZOLE [Concomitant]
     Indication: GASTROOESOPHAGEAL REFLUX DISEASE
  3. OXYCODONE [Concomitant]
     Indication: PAIN
  4. NADOLOL [Concomitant]
     Indication: LIVER DISORDER
  5. COUMADIN [Concomitant]
     Indication: THROMBOSIS
  6. HUMIRA [Suspect]
     Indication: RHEUMATOID ARTHRITIS
     Dates: start: 20101109
  7. NADOLOL [Concomitant]
     Indication: PROPHYLAXIS
  8. WELCHOL [Concomitant]
     Indication: BLOOD CHOLESTEROL INCREASED
     Dosage: 3 IN AM AND 3 IN PM
  9. PREDNISONE [Concomitant]
     Indication: ARTHRITIS

REACTIONS (2)
  - CELLULITIS [None]
  - THROMBOSIS [None]
